FAERS Safety Report 10247018 (Version 1)
Quarter: 2014Q2

REPORT INFORMATION
  Report Type: Spontaneous
  Country: CN (occurrence: CN)
  Receive Date: 20140619
  Receipt Date: 20140619
  Transmission Date: 20141212
  Serious: Yes (Other)
  Sender: FDA-Public Use
  Company Number: CN-PFIZER INC-2014161927

PATIENT
  Age: 81 Year
  Sex: Male
  Weight: 56 kg

DRUGS (8)
  1. PHARMORUBICIN [Suspect]
     Indication: NON-HODGKIN^S LYMPHOMA
     Dosage: 50 MG, 1X/DAY, CYCLIC
     Route: 041
     Dates: start: 20130916, end: 20130916
  2. CYCLOPHOSPHAMIDE [Suspect]
     Indication: NON-HODGKIN^S LYMPHOMA
     Dosage: 1.2 G, 1X/DAY, CYCLIC
     Route: 041
     Dates: start: 20130916, end: 20130916
  3. VINCRISTINE SULFATE [Suspect]
     Indication: NON-HODGKIN^S LYMPHOMA
     Dosage: 2 MG, 1X/DAY, CYCLIC
     Route: 041
     Dates: start: 20130916, end: 20130916
  4. DEXAMETH SODIUM PHOSPHATE [Concomitant]
     Indication: NON-HODGKIN^S LYMPHOMA
     Dosage: 15 MG, 1X/DAY
     Route: 041
     Dates: start: 20130916, end: 20130920
  5. DEXAMETH SODIUM PHOSPHATE [Concomitant]
     Dosage: 15 MG, 1X/DAY
     Route: 041
     Dates: start: 20131001, end: 20131001
  6. OMEPRAZOLE [Concomitant]
     Indication: GASTRITIS PROPHYLAXIS
     Dosage: 42.6 MG, 1X/DAY
     Route: 041
     Dates: start: 20130916, end: 20130921
  7. XIN BEI [Concomitant]
     Indication: ILL-DEFINED DISORDER
     Dosage: 5 MG, 1X/DAY
     Route: 041
     Dates: start: 20130916, end: 20130918
  8. GLUTHION [Concomitant]
     Indication: PROPHYLAXIS
     Dosage: 1.8 G, 1X/DAY
     Route: 040
     Dates: start: 20130916, end: 20130923

REACTIONS (4)
  - Mastication disorder [Recovering/Resolving]
  - Hypoaesthesia [Recovering/Resolving]
  - Gingival pain [Recovering/Resolving]
  - White blood cell count decreased [Recovering/Resolving]
